APPROVED DRUG PRODUCT: ACCURBRON
Active Ingredient: THEOPHYLLINE
Strength: 150MG/15ML
Dosage Form/Route: SYRUP;ORAL
Application: A088746 | Product #001
Applicant: SANOFI AVENTIS US LLC
Approved: Nov 22, 1985 | RLD: No | RS: No | Type: DISCN